FAERS Safety Report 8095031-7 (Version None)
Quarter: 2012Q1

REPORT INFORMATION
  Report Type: 
  Country: None (occurrence: None)
  Receive Date: 20120131
  Receipt Date: 20120131
  Transmission Date: 20120608
  Serious: Yes (Hospitalization)
  Sender: FDA-Public Use
  Company Number: None

PATIENT
  Age: 75 Year
  Sex: Female

DRUGS (10)
  1. LANTUS [Concomitant]
  2. NEURONTIN [Concomitant]
  3. COUMADIN [Concomitant]
     Dosage: 7.5 MG
     Route: 048
  4. DICLOXACILLIN [Concomitant]
  5. VALIUM [Concomitant]
  6. COUMADIN [Suspect]
     Indication: PULMONARY EMBOLISM
     Dosage: 10MG
     Route: 048
  7. NOVOLOG [Concomitant]
  8. SYNTHROID [Concomitant]
  9. BENTYL [Concomitant]
  10. PHENERGAN [Concomitant]

REACTIONS (3)
  - FALL [None]
  - HAEMATOMA [None]
  - ANAEMIA [None]
